FAERS Safety Report 20199694 (Version 2)
Quarter: 2024Q1

REPORT INFORMATION
  Report Type: Spontaneous
  Country: US (occurrence: US)
  Receive Date: 20211217
  Receipt Date: 20240201
  Transmission Date: 20240410
  Serious: No
  Sender: FDA-Public Use
  Company Number: US-NOVEN PHARMACEUTICALS, INC.-2020US008006

PATIENT
  Sex: Female
  Weight: 58.05 kg

DRUGS (1)
  1. ESTRADIOL [Suspect]
     Active Substance: ESTRADIOL
     Indication: Premature menopause
     Dosage: 0.05 MG, UNK
     Route: 062
     Dates: start: 2015, end: 2015

REACTIONS (5)
  - Application site rash [Recovered/Resolved]
  - Application site inflammation [Recovered/Resolved]
  - Application site swelling [Recovered/Resolved]
  - Application site pruritus [Recovered/Resolved]
  - Application site erythema [Recovered/Resolved]

NARRATIVE: CASE EVENT DATE: 20150101
